FAERS Safety Report 9393702 (Version 2)
Quarter: 2014Q1

REPORT INFORMATION
  Report Type: Spontaneous
  Country: US (occurrence: US)
  Receive Date: 20130710
  Receipt Date: 20140204
  Transmission Date: 20141002
  Serious: Yes (Other)
  Sender: FDA-Public Use
  Company Number: US-JNJFOC-20130618912

PATIENT
  Sex: Female
  Weight: 111.13 kg

DRUGS (7)
  1. DURAGESIC [Suspect]
     Indication: PAIN
     Route: 062
  2. FENTANYL TRANSDERMAL SYSTEM [Suspect]
     Indication: PAIN
     Route: 062
  3. DURAGESIC [Suspect]
     Indication: PAIN
     Route: 062
     Dates: start: 2013
  4. DURAGESIC [Suspect]
     Indication: PAIN
     Route: 062
     Dates: start: 2013
  5. WATSON FENTANYL TRANSDERMAL SYSTEM [Suspect]
     Indication: PAIN
     Route: 062
  6. MYLAN FENTANYL TRANSDERMAL SYSTEM [Suspect]
     Indication: PAIN
     Route: 062
  7. MALLINCKRODT FENTANYL PATCHES [Suspect]
     Indication: PAIN
     Route: 062

REACTIONS (7)
  - Hypothyroidism [Unknown]
  - Drug withdrawal syndrome [Unknown]
  - Dysstasia [Not Recovered/Not Resolved]
  - Hyperhidrosis [Not Recovered/Not Resolved]
  - Product adhesion issue [Unknown]
  - Product adhesion issue [Unknown]
  - Drug ineffective [Recovered/Resolved]
